FAERS Safety Report 6222546-6 (Version None)
Quarter: 2009Q2

REPORT INFORMATION
  Report Type: 
  Country: None (occurrence: None)
  Receive Date: 20090609
  Receipt Date: 20090609
  Transmission Date: 20091009
  Serious: No
  Sender: FDA-Public Use
  Company Number: None

PATIENT
  Age: 62 Year
  Sex: Male
  Weight: 111.1313 kg

DRUGS (1)
  1. GLIPIZIDE XL 5MG GREENSTONE [Suspect]
     Indication: DIABETES MELLITUS
     Dosage: 1 DAILY DAILY PO
     Route: 048
     Dates: start: 20090101, end: 20090608

REACTIONS (7)
  - BLOOD GLUCOSE INCREASED [None]
  - FLATULENCE [None]
  - HYPOAESTHESIA [None]
  - MEDICATION RESIDUE [None]
  - MICTURITION URGENCY [None]
  - PARAESTHESIA [None]
  - POLLAKIURIA [None]
